FAERS Safety Report 10015928 (Version 1)
Quarter: 2014Q1

REPORT INFORMATION
  Report Type: Spontaneous
  Country: SE (occurrence: SE)
  Receive Date: 20140317
  Receipt Date: 20140317
  Transmission Date: 20141002
  Serious: Yes (Life-Threatening, Other)
  Sender: FDA-Public Use
  Company Number: SE-PFIZER INC-2014075684

PATIENT
  Age: 68 Year
  Sex: Male

DRUGS (6)
  1. METHOTREXATE SODIUM [Suspect]
     Indication: COLITIS ULCERATIVE
     Dosage: 12.5 MG, UNK
     Dates: start: 20051230, end: 20140221
  2. METHOTREXATE SODIUM [Suspect]
     Indication: ARTHRITIS ENTEROPATHIC
  3. SALAZOPYRIN [Suspect]
     Indication: COLITIS ULCERATIVE
     Dosage: 3000 MG
     Dates: start: 20090303, end: 20140221
  4. SALAZOPYRIN [Suspect]
     Indication: ARTHRITIS ENTEROPATHIC
  5. CIMZIA [Suspect]
     Indication: COLITIS ULCERATIVE
     Dosage: 200 MG
     Dates: start: 20130227, end: 20140221
  6. CIMZIA [Suspect]
     Indication: ARTHRITIS ENTEROPATHIC

REACTIONS (2)
  - Adenocarcinoma [Not Recovered/Not Resolved]
  - Metastases to liver [Not Recovered/Not Resolved]
